FAERS Safety Report 14019523 (Version 7)
Quarter: 2018Q3

REPORT INFORMATION
  Report Type: Spontaneous
  Country: FR (occurrence: FR)
  Receive Date: 20170928
  Receipt Date: 20180901
  Transmission Date: 20181010
  Serious: Yes (Death, Life-Threatening, Hospitalization, Other)
  Sender: FDA-Public Use
  Company Number: FR-AUROBINDO-AUR-APL-2017-41007

PATIENT
  Age: 34 Year
  Sex: Male

DRUGS (11)
  1. LAMOTRIGINE. [Suspect]
     Active Substance: LAMOTRIGINE
     Dosage: 200 MILLIGRAM
     Route: 048
  2. LAMOTRIGINE. [Suspect]
     Active Substance: LAMOTRIGINE
     Indication: SUICIDE ATTEMPT
     Dosage: 200 MG, QD
     Route: 048
  3. LACOSAMIDE. [Suspect]
     Active Substance: LACOSAMIDE
     Dosage: 8.4 G, IN TOTAL
     Route: 048
  4. METOPROLOL. [Suspect]
     Active Substance: METOPROLOL
     Indication: SUICIDE ATTEMPT
     Dosage: 100 MG, DAILY
     Route: 048
  5. METOPROLOL. [Suspect]
     Active Substance: METOPROLOL
     Route: 048
  6. EPINEPHRINE HYDROCHLORIDE. [Suspect]
     Active Substance: EPINEPHRINE HYDROCHLORIDE
     Indication: PRODUCT USED FOR UNKNOWN INDICATION
     Dosage: 10 MG,UNK
     Route: 041
  7. PERAMPANEL [Concomitant]
     Active Substance: PERAMPANEL
     Indication: EPILEPSY
     Dosage: 8 MG, DAILY
     Route: 065
  8. METOPROLOL. [Suspect]
     Active Substance: METOPROLOL
     Dosage: 3.5 G, TOTAL
     Route: 048
  9. METOPROLOL. [Suspect]
     Active Substance: METOPROLOL
     Route: 048
  10. LACOSAMIDE. [Suspect]
     Active Substance: LACOSAMIDE
     Indication: EPILEPSY
     Dosage: 400 MG, DAILY
     Route: 048
  11. CLOBAZAM [Concomitant]
     Active Substance: CLOBAZAM
     Indication: EPILEPSY
     Dosage: 5 MG, UNK
     Route: 065

REACTIONS (30)
  - Cardiac arrest [Fatal]
  - Blood lactic acid increased [Fatal]
  - Hypokalaemia [Fatal]
  - Areflexia [Fatal]
  - Toxicity to various agents [Fatal]
  - Apnoea [Fatal]
  - Bradypnoea [Fatal]
  - Coma [Fatal]
  - PCO2 decreased [Fatal]
  - Atrioventricular block [Fatal]
  - Shock [Fatal]
  - Suicide attempt [Fatal]
  - Seizure [Fatal]
  - Multiple organ dysfunction syndrome [Fatal]
  - Heart rate decreased [Fatal]
  - Drug ineffective [Unknown]
  - PO2 increased [Fatal]
  - Electroencephalogram abnormal [Fatal]
  - Blood glucose decreased [Fatal]
  - Mydriasis [Fatal]
  - Epilepsy [Fatal]
  - Cerebral hypoperfusion [Fatal]
  - Drug level increased [Fatal]
  - Metabolic acidosis [Unknown]
  - Renal failure [Fatal]
  - Intentional overdose [Fatal]
  - Corneal reflex decreased [Fatal]
  - Ejection fraction decreased [Fatal]
  - Blood pH decreased [Fatal]
  - Blood bicarbonate decreased [Fatal]
